FAERS Safety Report 9790267 (Version 3)
Quarter: 2014Q1

REPORT INFORMATION
  Report Type: Spontaneous
  Country: US (occurrence: US)
  Receive Date: 20131231
  Receipt Date: 20140306
  Transmission Date: 20141002
  Serious: Yes (Life-Threatening, Hospitalization, Other)
  Sender: FDA-Public Use
  Company Number: US-SA-2013SA135325

PATIENT
  Age: 79 Year
  Sex: Male
  Weight: 57.15 kg

DRUGS (22)
  1. FLUDARA [Suspect]
     Indication: CHRONIC LYMPHOCYTIC LEUKAEMIA
     Dosage: FREQUENCY: D1-2-3, Q3WKS
     Route: 042
     Dates: start: 20120501, end: 20120817
  2. RITUXIMAB [Suspect]
     Indication: CHRONIC LYMPHOCYTIC LEUKAEMIA
     Dosage: FREQUENCY: D1 Q3WKS
     Route: 042
     Dates: start: 20120501, end: 20120815
  3. CISPLATIN [Concomitant]
     Dates: start: 2013
  4. ALBUTEROL [Concomitant]
     Route: 055
  5. COLACE [Concomitant]
  6. FLOMAX [Concomitant]
  7. FOLIC ACID [Concomitant]
  8. HYDROCODONE [Concomitant]
     Dosage: 5/500; 1 ORAL, EVERY 6 HOURS; PRN
  9. LOPERAMIDE [Concomitant]
  10. LORATADINE [Concomitant]
     Route: 048
  11. NEXIUM [Concomitant]
     Route: 048
  12. POTASSIUM [Concomitant]
  13. ZOFRAN [Concomitant]
     Route: 048
  14. ELITEK [Concomitant]
     Dates: start: 201311
  15. PROMETHAZINE [Concomitant]
     Indication: NAUSEA
  16. REGLAN [Concomitant]
     Dosage: AT BEDTIME
     Route: 048
  17. CYCLOBENZAPRINE [Concomitant]
  18. CHLORDIAZEPOXIDE [Concomitant]
  19. CHLORASEPTIC [Concomitant]
  20. ELECTROLYTE SOLUTIONS [Concomitant]
     Dates: start: 2013
  21. ZOSYN [Concomitant]
     Dates: start: 20131104
  22. ANALGESICS [Concomitant]
     Dates: start: 2013

REACTIONS (10)
  - Pseudomonas infection [Unknown]
  - Klebsiella infection [Unknown]
  - Atrial fibrillation [Recovered/Resolved]
  - Laryngeal cancer [Recovered/Resolved]
  - Dysphagia [Recovered/Resolved]
  - Odynophagia [Recovered/Resolved]
  - Weight decreased [Recovered/Resolved]
  - Obstructive airways disorder [Recovered/Resolved]
  - Mucosal inflammation [Unknown]
  - Hiatus hernia [Unknown]
